FAERS Safety Report 20348306 (Version 1)
Quarter: 2022Q1

REPORT INFORMATION
  Report Type: Spontaneous
  Country: US (occurrence: US)
  Receive Date: 20220119
  Receipt Date: 20220119
  Transmission Date: 20220424
  Serious: No
  Sender: FDA-Public Use
  Company Number: US-JNJFOC-20220124229

PATIENT
  Age: 2 Year

DRUGS (1)
  1. CHILDRENS MOTRIN [Suspect]
     Active Substance: IBUPROFEN
     Indication: Accidental exposure to product
     Dosage: MORE THAN 5 ML
     Route: 048

REACTIONS (1)
  - Accidental exposure to product by child [Unknown]
